FAERS Safety Report 6243314-5 (Version None)
Quarter: 2009Q2

REPORT INFORMATION
  Report Type: 
  Country: None (occurrence: None)
  Receive Date: 20090624
  Receipt Date: 20090616
  Transmission Date: 20091009
  Serious: Yes (Other)
  Sender: FDA-Public Use
  Company Number: PHEH2009US04424

PATIENT
  Sex: Female
  Weight: 48.98 kg

DRUGS (16)
  1. RECLAST [Suspect]
     Indication: BONE DISORDER
     Dosage: UNK
     Dates: start: 20080801
  2. OSCAL [Concomitant]
     Dosage: UNK
  3. DARVOCET-N 100 [Concomitant]
     Dosage: 100 MG, TID
  4. TIMOPTIC [Concomitant]
     Dosage: 1 GTT LEFT EYE BID
  5. XALATAN [Concomitant]
     Dosage: 1 GTT LEFT EYE HS
  6. PATANOL [Concomitant]
     Dosage: UAD PRN
  7. XANAX [Concomitant]
     Dosage: 0.5 MG TID PRN
  8. PREMARIN [Concomitant]
     Dosage: 03625 MG, QD
  9. NASACORT AQ [Concomitant]
     Dosage: 2 SPRAYS EACH NOSTRIL Q DAY
  10. SYNTHROID [Concomitant]
     Dosage: 0.175 MG, QD
  11. ENALAPRIL [Concomitant]
     Dosage: 20 MG, BID
  12. POTASSIUM CHLORIDE [Concomitant]
     Dosage: 8 MEQ, QOD
  13. DIGOXIN [Concomitant]
     Dosage: 0.125 MG, QD
  14. RELAFEN [Concomitant]
     Dosage: 500 MG, BID
  15. HYDROCHLOROTHIAZIDE [Concomitant]
     Dosage: 12.5 MG, QD
  16. TOPROL-XL [Concomitant]
     Dosage: 25 MG, QHS

REACTIONS (12)
  - BACK PAIN [None]
  - CATARACT [None]
  - DRY SKIN [None]
  - EYE DISORDER [None]
  - NAIL DISORDER [None]
  - PAIN IN EXTREMITY [None]
  - PERIPHERAL COLDNESS [None]
  - RENAL PAIN [None]
  - SKIN DISORDER [None]
  - SKIN EXFOLIATION [None]
  - TOOTH DISORDER [None]
  - VISUAL ACUITY REDUCED [None]
